FAERS Safety Report 19584026 (Version 3)
Quarter: 2023Q2

REPORT INFORMATION
  Report Type: Spontaneous
  Country: HU (occurrence: HU)
  Receive Date: 20210720
  Receipt Date: 20230407
  Transmission Date: 20230721
  Serious: No
  Sender: FDA-Public Use
  Company Number: HU-ASTRAZENECA-2021A514817

PATIENT
  Age: 14939 Day
  Sex: Female
  Weight: 80 kg

DRUGS (3)
  1. MONTELUKAST SODIUM [Suspect]
     Active Substance: MONTELUKAST SODIUM
     Dosage: 10 MILLIGRAM, QD
     Dates: start: 20190101
  2. FOSTER [Suspect]
     Active Substance: BECLOMETHASONE\FORMOTEROL
     Dosage: 200/6
     Dates: start: 20190101
  3. FASENRA [Suspect]
     Active Substance: BENRALIZUMAB
     Indication: Asthma
     Dosage: 30 MILLIGRAM, EVERY 8 WEEKS; (FORMULATION REPORTED AS: SOLUTION FOR INJECTION IN PRE-FILLED PEN)
     Route: 058
     Dates: start: 202006

REACTIONS (2)
  - Exposure during pregnancy [Unknown]
  - Acquired haemophilia [Unknown]

NARRATIVE: CASE EVENT DATE: 20210608
